FAERS Safety Report 14487965 (Version 1)
Quarter: 2018Q1

REPORT INFORMATION
  Report Type: Spontaneous
  Country: JP (occurrence: JP)
  Receive Date: 20180205
  Receipt Date: 20180205
  Transmission Date: 20180509
  Serious: Yes (Other)
  Sender: FDA-Public Use
  Company Number: JP-PFIZER INC-2018046436

PATIENT

DRUGS (2)
  1. CELECOX [Suspect]
     Active Substance: CELECOXIB
     Indication: BACK PAIN
     Dosage: UNK
     Route: 048
  2. TEPRENONE [Concomitant]
     Active Substance: TEPRENONE
     Indication: BACK PAIN
     Dosage: UNK
     Route: 048

REACTIONS (1)
  - Colon cancer [Unknown]
